FAERS Safety Report 6290388-1 (Version None)
Quarter: 2009Q3

REPORT INFORMATION
  Report Type: 
  Country: None (occurrence: None)
  Receive Date: 20090730
  Receipt Date: 20090318
  Transmission Date: 20100115
  Serious: No
  Sender: FDA-Public Use
  Company Number: US-BRISTOL-MYERS SQUIBB COMPANY-14553812

PATIENT
  Age: 68 Year
  Sex: Male

DRUGS (2)
  1. COUMADIN [Suspect]
     Dates: start: 20090213
  2. LOVENOX [Suspect]
     Indication: HIP ARTHROPLASTY
     Dosage: ENOXAPARIN SOLUTION FOR INJ.
     Dates: start: 20090212

REACTIONS (1)
  - INJECTION SITE HAEMORRHAGE [None]
